FAERS Safety Report 7297587-0 (Version None)
Quarter: 2011Q1

REPORT INFORMATION
  Report Type: 
  Country: None (occurrence: None)
  Receive Date: 20110216
  Receipt Date: 20110204
  Transmission Date: 20110831
  Serious: Yes (Hospitalization, Other)
  Sender: FDA-Public Use
  Company Number: DE-ELI_LILLY_AND_COMPANY-DE201102001405

PATIENT
  Sex: Female

DRUGS (2)
  1. CALCIMAGON-D3 [Concomitant]
     Dosage: UNK, UNKNOWN
     Route: 048
  2. FORTEO [Suspect]
     Indication: OSTEOPOROSIS
     Dosage: UNK, UNKNOWN
     Route: 058
     Dates: start: 20091113

REACTIONS (5)
  - SYNCOPE [None]
  - CARDIOVASCULAR DISORDER [None]
  - PALPITATIONS [None]
  - BLOOD PRESSURE DECREASED [None]
  - DIZZINESS [None]
